FAERS Safety Report 8901689 (Version 1)
Quarter: 2012Q4

REPORT INFORMATION
  Report Type: Spontaneous
  Country: DE (occurrence: None)
  Receive Date: 20121101
  Receipt Date: 20121101
  Transmission Date: 20130627
  Serious: Yes (Disabling, Other)
  Sender: FDA-Public Use
  Company Number: GER/GER/12/0026281

PATIENT
  Age: 38 Year
  Sex: Female

DRUGS (1)
  1. FLUOXETIN [Suspect]
     Indication: DRUG USE FOR UNKNOWN INDICATION
     Route: 048

REACTIONS (5)
  - Depression [None]
  - Oedema peripheral [None]
  - Abdominal pain [None]
  - Rash [None]
  - Product contamination [None]
